FAERS Safety Report 8350984-4 (Version None)
Quarter: 2012Q2

REPORT INFORMATION
  Report Type: 
  Country: None (occurrence: None)
  Receive Date: 20120510
  Receipt Date: 20120430
  Transmission Date: 20120825
  Serious: Yes (Hospitalization, Other)
  Sender: FDA-Public Use
  Company Number: FR-PFIZER INC-2012112083

PATIENT
  Age: 77 Year
  Sex: Female

DRUGS (18)
  1. LASIX [Concomitant]
     Dosage: UNK
     Dates: start: 20120201, end: 20120309
  2. EUPRESSYL [Concomitant]
     Dosage: UNK
     Dates: start: 20120201, end: 20120309
  3. AMLODIPINE BESYLATE [Concomitant]
     Dosage: UNK
     Dates: start: 20120201
  4. ACETAMINOPHEN [Concomitant]
     Dosage: UNK
     Dates: start: 20120201, end: 20120309
  5. RAMIPRIL [Suspect]
     Indication: PRODUCT USED FOR UNKNOWN INDICATION
     Dosage: UNK
     Route: 048
     Dates: start: 20120306, end: 20120309
  6. HYPERIUM [Suspect]
     Indication: PRODUCT USED FOR UNKNOWN INDICATION
     Dosage: UNK
     Route: 048
     Dates: start: 20120216, end: 20120309
  7. NEXIUM [Concomitant]
     Dosage: UNK
     Dates: start: 20120201, end: 20120309
  8. ASPIRIN [Concomitant]
     Dosage: UNK
     Dates: start: 20120201
  9. XANAX [Concomitant]
     Dosage: UNK
     Dates: start: 20120201, end: 20120309
  10. PANTOPRAZOLE SODIUM [Suspect]
     Indication: PRODUCT USED FOR UNKNOWN INDICATION
     Dosage: UNK
     Dates: start: 20120222, end: 20120309
  11. PROCORALAN [Concomitant]
     Dosage: UNK
     Dates: start: 20120201, end: 20120309
  12. NITRODERM [Concomitant]
     Dosage: UNK
     Dates: start: 20120201, end: 20120309
  13. ATARAX [Concomitant]
     Dosage: UNK
     Dates: start: 20120201, end: 20120309
  14. KAYEXALATE [Concomitant]
     Dosage: UNK
     Dates: start: 20120201, end: 20120305
  15. ALLOPURINOL [Suspect]
     Indication: PRODUCT USED FOR UNKNOWN INDICATION
     Dosage: UNK
     Route: 048
     Dates: start: 20120226, end: 20120309
  16. PLAVIX [Suspect]
     Indication: PRODUCT USED FOR UNKNOWN INDICATION
     Dosage: UNK
     Route: 048
     Dates: start: 20120212, end: 20120309
  17. ATORVASTATIN [Concomitant]
     Dosage: UNK
     Dates: start: 20120201, end: 20120309
  18. BISOPROLOL [Concomitant]
     Dosage: UNK
     Dates: start: 20120201, end: 20120309

REACTIONS (3)
  - THROMBOCYTOPENIA [None]
  - AGRANULOCYTOSIS [None]
  - LEUKOPENIA [None]
